FAERS Safety Report 10008053 (Version 1)
Quarter: 2014Q1

REPORT INFORMATION
  Report Type: Spontaneous
  Country: DE (occurrence: DE)
  Receive Date: 20140313
  Receipt Date: 20140313
  Transmission Date: 20141002
  Serious: Yes (Other)
  Sender: FDA-Public Use
  Company Number: DE-MYLANLABS-2014S1004793

PATIENT
  Sex: Female
  Weight: 50.4 kg

DRUGS (3)
  1. AZATHIOPRINE [Suspect]
     Indication: CROHN^S DISEASE
     Dosage: 100 [MG/D ]/ SINCE 2006
     Route: 048
     Dates: start: 20120911, end: 20130308
  2. FOLIO FORTE [Concomitant]
     Indication: PROPHYLAXIS OF NEURAL TUBE DEFECT
     Dosage: 0.8 [MG/D ]
     Route: 048
     Dates: start: 20120911, end: 20130308
  3. BETAMETHASONE [Concomitant]
     Indication: MATERNAL THERAPY TO ENHANCE FOETAL LUNG MATURITY
     Dosage: 12 [MG/D ]
     Route: 030

REACTIONS (2)
  - HELLP syndrome [Recovered/Resolved]
  - Exposure during pregnancy [Recovered/Resolved]
